FAERS Safety Report 10459909 (Version 1)
Quarter: 2014Q3

REPORT INFORMATION
  Report Type: Spontaneous
  Country: US (occurrence: US)
  Receive Date: 20140917
  Receipt Date: 20140917
  Transmission Date: 20150326
  Serious: No
  Sender: FDA-Public Use
  Company Number: US-TEVA-503219USA

PATIENT
  Sex: Female
  Weight: 68.1 kg

DRUGS (3)
  1. DURAGESIC [Concomitant]
     Active Substance: FENTANYL
     Indication: PAIN MANAGEMENT
  2. ACTIQ [Suspect]
     Active Substance: FENTANYL CITRATE
     Indication: COMPLEX REGIONAL PAIN SYNDROME
  3. ACTIQ [Suspect]
     Active Substance: FENTANYL CITRATE
     Indication: INTERVERTEBRAL DISC DISORDER
     Route: 048

REACTIONS (3)
  - Flatulence [Not Recovered/Not Resolved]
  - Abdominal distension [Not Recovered/Not Resolved]
  - Off label use [Unknown]
